FAERS Safety Report 10503428 (Version 1)
Quarter: 2014Q4

REPORT INFORMATION
  Report Type: Report from Study
  Country: US (occurrence: US)
  Receive Date: 20141008
  Receipt Date: 20141008
  Transmission Date: 20150528
  Serious: Yes (Other)
  Sender: FDA-Public Use
  Company Number: US-BIOGENIDEC-2014BI103616

PATIENT
  Age: 33 Year
  Sex: Female
  Weight: 87 kg

DRUGS (6)
  1. TECFIDERA [Suspect]
     Active Substance: DIMETHYL FUMARATE
     Indication: MULTIPLE SCLEROSIS
     Route: 048
     Dates: start: 2014
  2. TECFIDERA [Suspect]
     Active Substance: DIMETHYL FUMARATE
     Indication: MULTIPLE SCLEROSIS
     Route: 048
     Dates: end: 201407
  3. IRON [Concomitant]
     Active Substance: IRON
  4. VITAMIN B12 [Concomitant]
     Active Substance: CYANOCOBALAMIN
  5. CENTRUM [Concomitant]
     Active Substance: VITAMINS
  6. CALCIUM +D [Concomitant]
     Active Substance: CALCIUM\VITAMIN D

REACTIONS (7)
  - Clumsiness [Unknown]
  - Gastric bypass [Recovered/Resolved]
  - White matter lesion [Unknown]
  - Central nervous system lesion [Unknown]
  - Memory impairment [Unknown]
  - Arthritis [Unknown]
  - Mood swings [Unknown]

NARRATIVE: CASE EVENT DATE: 201405
